FAERS Safety Report 25689130 (Version 2)
Quarter: 2025Q3

REPORT INFORMATION
  Report Type: Spontaneous
  Country: EU (occurrence: EU)
  Receive Date: 20250818
  Receipt Date: 20250902
  Transmission Date: 20251021
  Serious: Yes (Hospitalization, Other)
  Sender: SANDOZ
  Company Number: EU-ORESUND-25OPAJY0775P

PATIENT
  Age: 61 Year
  Sex: Male

DRUGS (3)
  1. METHOTREXATE [Suspect]
     Active Substance: METHOTREXATE
     Indication: Rheumatoid arthritis
     Route: 065
  2. CEFTRIAXONE [Concomitant]
     Active Substance: CEFTRIAXONE
     Indication: Antibiotic therapy
     Route: 065
  3. LINEZOLID [Concomitant]
     Active Substance: LINEZOLID
     Indication: Enterococcal infection
     Route: 065

REACTIONS (41)
  - Lung adenocarcinoma [Unknown]
  - Respiratory disorder [Unknown]
  - Interstitial lung abnormality [Unknown]
  - Bronchiectasis [Unknown]
  - Respiratory failure [Unknown]
  - Metastatic neoplasm [Unknown]
  - Neoplasm [Unknown]
  - Lung adenocarcinoma [Unknown]
  - Neoplasm [Unknown]
  - Pulmonary embolism [Unknown]
  - Pulmonary embolism [Unknown]
  - Abnormal loss of weight [Unknown]
  - Respiratory tract malformation [Unknown]
  - Pleural thickening [Unknown]
  - Emphysema [Unknown]
  - Oxygen therapy [Unknown]
  - Leukocytosis [Unknown]
  - Neutrophilia [Unknown]
  - Red blood cell sedimentation rate abnormal [Unknown]
  - Blood fibrinogen abnormal [Unknown]
  - C-reactive protein abnormal [Unknown]
  - Blood lactate dehydrogenase increased [Unknown]
  - Iron deficiency [Unknown]
  - Lung opacity [Unknown]
  - Mediastinal disorder [Unknown]
  - Disease progression [Unknown]
  - Pleural thickening [Unknown]
  - Bronchoscopy abnormal [Unknown]
  - Upper airway obstruction [Unknown]
  - General physical health deterioration [Unknown]
  - Pulmonary mass [Unknown]
  - Productive cough [Unknown]
  - Pulmonary mass [Unknown]
  - Oxygen saturation decreased [Unknown]
  - Enterococcal infection [Unknown]
  - Lymphadenopathy [Unknown]
  - Chest pain [Unknown]
  - Pyrexia [Unknown]
  - Decreased appetite [Unknown]
  - Arthralgia [Unknown]
  - Dyspnoea [Recovering/Resolving]

NARRATIVE: CASE EVENT DATE: 20250201
